FAERS Safety Report 18340932 (Version 4)
Quarter: 2021Q1

REPORT INFORMATION
  Report Type: Spontaneous
  Country: FR (occurrence: FR)
  Receive Date: 20201003
  Receipt Date: 20210210
  Transmission Date: 20210419
  Serious: Yes (Hospitalization)
  Sender: FDA-Public Use
  Company Number: FR-AUROBINDO-AUR-APL-2020-050280

PATIENT
  Age: 25 Year
  Sex: Female

DRUGS (4)
  1. ARIPIPRAZOLE ARROW [Suspect]
     Active Substance: ARIPIPRAZOLE
     Dosage: 5 MILLIGRAM, DAILY
     Route: 048
     Dates: start: 201912
  2. ARIPIPRAZOLE ARROW [Suspect]
     Active Substance: ARIPIPRAZOLE
     Dosage: 10 MILLIGRAM, DAILY
     Route: 048
     Dates: start: 201902, end: 201912
  3. ARIPIPRAZOLE ARROW [Suspect]
     Active Substance: ARIPIPRAZOLE
     Indication: BIPOLAR DISORDER
     Dosage: 30 MILLIGRAM, DAILY
     Route: 048
     Dates: start: 201708, end: 201801
  4. ARIPIPRAZOLE ARROW [Suspect]
     Active Substance: ARIPIPRAZOLE
     Indication: MANIA
     Dosage: 30 MILLIGRAM, DAILY
     Route: 048
     Dates: start: 20180205, end: 201902

REACTIONS (8)
  - Normal newborn [Unknown]
  - Therapy interrupted [Unknown]
  - Prescribed underdose [Unknown]
  - Term baby [Unknown]
  - Maternal exposure during pregnancy [Unknown]
  - Psychiatric decompensation [Recovered/Resolved]
  - Intentional product misuse [Unknown]
  - Disturbance in attention [Recovered/Resolved]

NARRATIVE: CASE EVENT DATE: 2018
